FAERS Safety Report 8999482 (Version 1)
Quarter: 2013Q1

REPORT INFORMATION
  Report Type: Spontaneous
  Country: JP (occurrence: JP)
  Receive Date: 20130103
  Receipt Date: 20130103
  Transmission Date: 20140127
  Serious: Yes (Other)
  Sender: FDA-Public Use
  Company Number: JP-GLAXOSMITHKLINE-B0855476A

PATIENT
  Sex: Male

DRUGS (2)
  1. SEREVENT DISKUS [Suspect]
     Indication: ASTHMA
     Route: 055
  2. PULMICORT [Concomitant]
     Route: 055

REACTIONS (2)
  - Oesophageal candidiasis [Not Recovered/Not Resolved]
  - Calcium deficiency [Not Recovered/Not Resolved]
